FAERS Safety Report 20574330 (Version 1)
Quarter: 2022Q1

REPORT INFORMATION
  Report Type: Spontaneous
  Country: US (occurrence: US)
  Receive Date: 20220309
  Receipt Date: 20220309
  Transmission Date: 20220423
  Serious: Yes (Other)
  Sender: FDA-Public Use
  Company Number: US-CELGENE-USA-20220301082

PATIENT
  Age: 25 Year
  Sex: Female

DRUGS (3)
  1. THALOMID [Suspect]
     Active Substance: THALIDOMIDE
     Indication: Systemic lupus erythematosus
     Route: 041
  2. THALOMID [Suspect]
     Active Substance: THALIDOMIDE
     Indication: Chronic kidney disease
  3. THALOMID [Suspect]
     Active Substance: THALIDOMIDE
     Indication: End stage renal disease

REACTIONS (2)
  - Varicella zoster virus infection [Unknown]
  - Ophthalmic herpes zoster [Unknown]
